FAERS Safety Report 6887347-4 (Version None)
Quarter: 2010Q3

REPORT INFORMATION
  Report Type: 
  Country: None (occurrence: None)
  Receive Date: 20100730
  Receipt Date: 20090915
  Transmission Date: 20110219
  Serious: No
  Sender: FDA-Public Use
  Company Number: A0807420A

PATIENT
  Age: 47 Year
  Sex: Female

DRUGS (6)
  1. IMITREX [Suspect]
     Indication: MIGRAINE
     Dosage: 100MG AS REQUIRED
     Route: 048
     Dates: start: 20050101
  2. IMITREX [Suspect]
     Dosage: 6MG AS REQUIRED
     Route: 058
     Dates: start: 20060101
  3. LEXAPRO [Concomitant]
  4. LEVBID [Concomitant]
  5. AMBIEN [Concomitant]
  6. ULTRAM [Concomitant]

REACTIONS (2)
  - DRUG INEFFECTIVE [None]
  - THROAT TIGHTNESS [None]
